FAERS Safety Report 7469922-1 (Version None)
Quarter: 2011Q2

REPORT INFORMATION
  Report Type: 
  Country: None (occurrence: None)
  Receive Date: 20110510
  Receipt Date: 20110318
  Transmission Date: 20111010
  Serious: Yes (Death, Hospitalization)
  Sender: FDA-Public Use
  Company Number: FR-ROCHE-764645

PATIENT
  Sex: Male
  Weight: 74 kg

DRUGS (21)
  1. BACTRIM [Concomitant]
     Dates: start: 20110111, end: 20110308
  2. INSULIN [Concomitant]
     Dates: start: 20110117, end: 20110301
  3. PREDNISONE [Suspect]
     Route: 002
     Dates: start: 20110106, end: 20110308
  4. ESIDRIX [Concomitant]
     Dates: start: 20110217, end: 20110301
  5. ROVALCYTE [Concomitant]
     Dates: start: 20110111, end: 20110308
  6. BISOPROLOL FUMARATE [Concomitant]
     Dates: start: 20110301, end: 20110308
  7. MYCOPHENOLATE MOFETIL [Suspect]
     Route: 002
     Dates: start: 20110105, end: 20110308
  8. INIPOMP [Concomitant]
     Dates: start: 20110106, end: 20110308
  9. NIFEDIPINE [Concomitant]
     Dates: start: 20110110, end: 20110308
  10. ASPIRIN [Concomitant]
     Dates: start: 20110112, end: 20110301
  11. SODIUM BICARBONATE [Concomitant]
     Dates: start: 20110112
  12. FUROSEMIDE [Concomitant]
     Dates: start: 20110109, end: 20110111
  13. AFINITOR [Suspect]
     Route: 002
     Dates: start: 20110222, end: 20110308
  14. CARDENSIEL [Concomitant]
     Dates: start: 20110106
  15. CALCIDIA [Concomitant]
     Dates: start: 20110112, end: 20110308
  16. PHOSPHONEUROS [Concomitant]
     Dates: start: 20110112, end: 20110217
  17. PHOSPHONEUROS [Concomitant]
     Dates: start: 20110301, end: 20110308
  18. EPREX [Concomitant]
     Dosage: ODSE AS REPORTED:; 10000, FREQUENCY: 3 TIMES A WEEK
     Dates: start: 20110303, end: 20110306
  19. MIRCERA [Concomitant]
     Dosage: FREQUENCY: EVERY OTHER WEEK
     Dates: start: 20110307, end: 20110308
  20. LACTULOSE [Concomitant]
     Route: 065
     Dates: start: 20110112, end: 20110116
  21. LANTUS [Concomitant]
     Dosage: DOSE AS REPORTED: 160 U
     Dates: start: 20110117, end: 20110308

REACTIONS (2)
  - POSTRENAL FAILURE [None]
  - SUDDEN DEATH [None]
